FAERS Safety Report 7436878-7 (Version None)
Quarter: 2011Q2

REPORT INFORMATION
  Report Type: 
  Country: None (occurrence: None)
  Receive Date: 20110426
  Receipt Date: 20110218
  Transmission Date: 20111010
  Serious: Yes (Hospitalization, Other)
  Sender: FDA-Public Use
  Company Number: US-BAYER-201025537NA

PATIENT
  Age: 28 Year
  Sex: Female
  Weight: 56 kg

DRUGS (4)
  1. YASMIN [Suspect]
     Indication: CONTRACEPTION
     Dosage: 1 UNK, UNK
     Route: 048
     Dates: start: 20000101, end: 20080101
  2. VENLAFAXINE HCL [Concomitant]
     Indication: ANXIETY
     Dosage: 37.5 MG, UNK
     Dates: start: 20080101
  3. YAZ [Suspect]
     Indication: CONTRACEPTION
     Dosage: DAILY DOSE 1 DF
     Route: 048
     Dates: start: 20080101, end: 20100101
  4. EFFEXOR XR [Concomitant]
     Indication: ANXIETY
     Dosage: DAILY DOSE 150 MG
     Dates: start: 20070101

REACTIONS (4)
  - HYPERTENSION [None]
  - PALPITATIONS [None]
  - GALLBLADDER DISORDER [None]
  - ABDOMINAL PAIN [None]
